FAERS Safety Report 5404715-8 (Version None)
Quarter: 2007Q3

REPORT INFORMATION
  Report Type: 
  Country: None (occurrence: None)
  Receive Date: 20070801
  Receipt Date: 20070724
  Transmission Date: 20080115
  Serious: Yes (Death)
  Sender: FDA-Public Use
  Company Number: 07H-087-0312854-00

PATIENT
  Age: 52 Year
  Sex: Female
  Weight: 59 kg

DRUGS (6)
  1. PRECEDEX [Suspect]
     Indication: SEDATION
     Dosage: INTRAVENOUS
     Route: 042
     Dates: start: 20070404, end: 20070405
  2. PROGRAF [Suspect]
     Indication: IMMUNOSUPPRESSANT DRUG THERAPY
     Dosage: PER ORAL
     Route: 048
     Dates: start: 20070405
  3. DOPAMINE HCL [Concomitant]
  4. SULTAMICILLIN TOSILATE (UNASYN) [Concomitant]
  5. SULBACTAM SODIUM - CEFOPERAZONE SODIUM [Concomitant]
  6. ISOFLURANE [Concomitant]

REACTIONS (4)
  - HEPATIC FUNCTION ABNORMAL [None]
  - LIVER DISORDER [None]
  - STAPHYLOCOCCAL INFECTION [None]
  - TRANSPLANT REJECTION [None]
